FAERS Safety Report 7424940-4 (Version None)
Quarter: 2011Q2

REPORT INFORMATION
  Report Type: 
  Country: None (occurrence: None)
  Receive Date: 20110419
  Receipt Date: 20110414
  Transmission Date: 20111010
  Serious: Yes (Hospitalization)
  Sender: FDA-Public Use
  Company Number: US-B.I. PHARMACEUTICALS,INC./RIDGEFIELD-2011-BP-02172BP

PATIENT
  Sex: Male

DRUGS (20)
  1. SIMVASTATIN [Concomitant]
     Indication: BLOOD CHOLESTEROL INCREASED
  2. HYOSCYAMINE SULFATE [Concomitant]
     Indication: ABDOMINAL DISCOMFORT
  3. COUMADIN [Concomitant]
  4. COLACE [Concomitant]
  5. MESTINON [Concomitant]
     Indication: MYASTHENIA GRAVIS
     Dosage: 60 MG
  6. PRADAXA [Suspect]
     Indication: ATRIAL FIBRILLATION
     Dosage: 300 MG
     Route: 048
     Dates: start: 20110115, end: 20110118
  7. FERROUS SULFATE TAB [Concomitant]
     Indication: SUPPLEMENTATION THERAPY
  8. TRICOR [Concomitant]
     Indication: BLOOD CHOLESTEROL INCREASED
  9. PRILOSEC OTC [Concomitant]
  10. PRADAXA [Suspect]
     Indication: ANTICOAGULANT THERAPY
  11. DIGOXIN [Concomitant]
     Indication: ATRIAL FIBRILLATION
  12. LOMOTIL [Concomitant]
     Indication: ABDOMINAL DISCOMFORT
  13. PROTONIX [Concomitant]
     Indication: HIATUS HERNIA
  14. M.V.I. [Concomitant]
     Indication: SUPPLEMENTATION THERAPY
  15. LASIX [Concomitant]
     Indication: CARDIAC FAILURE
  16. ASPIRIN [Concomitant]
     Indication: PROPHYLAXIS
     Dosage: 81 MG
  17. ISORBIDE [Concomitant]
     Indication: BLOOD PRESSURE
  18. IMDUR [Concomitant]
  19. ISORBIDE [Concomitant]
     Indication: CARDIAC DISORDER
  20. FOLIC ACID [Concomitant]
     Indication: SUPPLEMENTATION THERAPY

REACTIONS (3)
  - HAEMATURIA [None]
  - CHROMATURIA [None]
  - BLOOD URINE PRESENT [None]
